FAERS Safety Report 8589946-0 (Version None)
Quarter: 2012Q3

REPORT INFORMATION
  Report Type: 
  Country: None (occurrence: None)
  Receive Date: 20120813
  Receipt Date: 20120802
  Transmission Date: 20120928
  Serious: Yes (Hospitalization, Other)
  Sender: FDA-Public Use
  Company Number: US-BAYER-2012-071606

PATIENT
  Age: 70 Year
  Sex: Male

DRUGS (4)
  1. NEXAVAR [Suspect]
     Dosage: 400 MG, BID
     Dates: start: 20120701, end: 20120701
  2. LOSARTAN POTASSIUM [Concomitant]
     Dosage: 100/12.5
     Route: 048
  3. NEXAVAR [Suspect]
     Dosage: 200 MG, BID
     Dates: start: 20120701
  4. NEXAVAR [Suspect]
     Indication: HEPATIC NEOPLASM MALIGNANT
     Dosage: 200 MG, BID
     Route: 048
     Dates: start: 20120710, end: 20120728

REACTIONS (13)
  - PANCREATIC ENZYMES INCREASED [None]
  - WEIGHT DECREASED [None]
  - GASTROOESOPHAGEAL REFLUX DISEASE [None]
  - PYREXIA [None]
  - INFREQUENT BOWEL MOVEMENTS [None]
  - BLOOD PHOSPHORUS DECREASED [None]
  - ABDOMINAL PAIN UPPER [None]
  - EATING DISORDER [None]
  - BLOOD PRESSURE INCREASED [None]
  - FATIGUE [None]
  - CHEST PAIN [None]
  - BLISTER [None]
  - WHITE BLOOD CELL COUNT INCREASED [None]
